FAERS Safety Report 6138740-9 (Version None)
Quarter: 2009Q1

REPORT INFORMATION
  Report Type: 
  Country: None (occurrence: None)
  Receive Date: 20090331
  Receipt Date: 20090316
  Transmission Date: 20090719
  Serious: Yes (Other)
  Sender: FDA-Public Use
  Company Number: SA-GENENTECH-279744

PATIENT
  Age: 22 Year
  Sex: Male

DRUGS (2)
  1. RITUXIMAB [Suspect]
     Indication: FACTOR VIII DEFICIENCY
     Dosage: 375 MG/M2, 1/WEEK
     Route: 065
  2. ANTIRETROVIRALS [Concomitant]
     Indication: HIV INFECTION

REACTIONS (1)
  - HERPES ZOSTER [None]
